FAERS Safety Report 8459461-3 (Version None)
Quarter: 2012Q2

REPORT INFORMATION
  Report Type: 
  Country: None (occurrence: None)
  Receive Date: 20120622
  Receipt Date: 20120619
  Transmission Date: 20120825
  Serious: Yes (Other)
  Sender: FDA-Public Use
  Company Number: US-ABBOTT-12P-163-0948412-00

PATIENT
  Age: 29 Year
  Sex: Female

DRUGS (2)
  1. COMBIVIR [Suspect]
     Indication: ANTIVIRAL TREATMENT
     Dosage: 2 TAB/CAPS DAILY; NOT AT CONCEPTION
     Route: 048
     Dates: start: 20111031
  2. KALETRA [Suspect]
     Indication: ANTIVIRAL TREATMENT
     Dosage: 4 TABS/CAPS DAILY; NOT AT CONCEPTION
     Route: 048
     Dates: start: 20111031

REACTIONS (1)
  - STILLBIRTH [None]
